FAERS Safety Report 5280245-1 (Version None)
Quarter: 2007Q1

REPORT INFORMATION
  Report Type: 
  Country: None (occurrence: None)
  Receive Date: 20070329
  Receipt Date: 20070213
  Transmission Date: 20070707
  Serious: No
  Sender: FDA-Public Use
  Company Number: US-BRISTOL-MYERS SQUIBB COMPANY-13678230

PATIENT

DRUGS (2)
  1. ABILIFY [Suspect]
     Route: 030
  2. ATIVAN [Suspect]

REACTIONS (1)
  - DROOLING [None]
